FAERS Safety Report 9993341 (Version 2)
Quarter: 2014Q2

REPORT INFORMATION
  Report Type: Spontaneous
  Country: US (occurrence: US)
  Receive Date: 20140310
  Receipt Date: 20140403
  Transmission Date: 20141212
  Serious: No
  Sender: FDA-Public Use
  Company Number: US-009507513-1403USA002643

PATIENT
  Sex: Female
  Weight: 18.96 kg

DRUGS (6)
  1. NASONEX [Suspect]
     Indication: HYPERSENSITIVITY
     Dosage: 1 SPRAY PER NOSTRIL DAILY
     Route: 045
     Dates: start: 201303, end: 20131111
  2. NASONEX [Suspect]
     Indication: RHINITIS ALLERGIC
  3. SINGULAIR [Concomitant]
  4. ADVAIR [Concomitant]
  5. PATADAY [Concomitant]
  6. ALBUTEROL [Concomitant]
     Dosage: WHEN NEEDED

REACTIONS (4)
  - Rhinorrhoea [Recovered/Resolved]
  - Lacrimation increased [Recovered/Resolved]
  - Pyrexia [Recovered/Resolved]
  - Hypersensitivity [Recovered/Resolved]
